FAERS Safety Report 5277239-9 (Version None)
Quarter: 2007Q1

REPORT INFORMATION
  Report Type: 
  Country: None (occurrence: None)
  Receive Date: 20070327
  Receipt Date: 20070315
  Transmission Date: 20070707
  Serious: Yes (Other)
  Sender: FDA-Public Use
  Company Number: US-JNJFOC-20070303811

PATIENT
  Sex: Female

DRUGS (9)
  1. INFLIXIMAB [Suspect]
     Indication: RHEUMATOID ARTHRITIS
     Route: 042
  2. ASPIRIN [Concomitant]
  3. TYLENOL [Concomitant]
  4. ASCORBIC ACID [Concomitant]
  5. HUMIRA [Concomitant]
  6. CALCIUM+D [Concomitant]
  7. FOSAMAX [Concomitant]
  8. MULTI-VITAMINS [Concomitant]
  9. RESTASIS [Concomitant]

REACTIONS (1)
  - SKIN CANCER [None]
